FAERS Safety Report 11890542 (Version 1)
Quarter: 2016Q1

REPORT INFORMATION
  Report Type: Report from Study
  Country: US (occurrence: US)
  Receive Date: 20160105
  Receipt Date: 20160105
  Transmission Date: 20160526
  Serious: Yes (Hospitalization, Disabling)
  Sender: FDA-Public Use
  Company Number: US-GILEAD-2015-0190233

PATIENT
  Age: 30 Year
  Sex: Female

DRUGS (1)
  1. LEDIPASVIR/SOFOSBUVIR [Suspect]
     Active Substance: LEDIPASVIR\SOFOSBUVIR
     Indication: CHRONIC HEPATITIS C
     Dosage: 1 DF, QD
     Route: 048
     Dates: start: 201508, end: 201510

REACTIONS (9)
  - Abasia [Unknown]
  - Pain [Unknown]
  - Memory impairment [Unknown]
  - Dyspnoea [Unknown]
  - Visual impairment [Unknown]
  - Headache [Unknown]
  - Mobility decreased [Unknown]
  - Activities of daily living impaired [Unknown]
  - Nervous system disorder [Unknown]
